FAERS Safety Report 8447097-X (Version None)
Quarter: 2012Q2

REPORT INFORMATION
  Report Type: 
  Country: None (occurrence: None)
  Receive Date: 20120619
  Receipt Date: 20120613
  Transmission Date: 20120825
  Serious: No
  Sender: FDA-Public Use
  Company Number: US-PFIZER INC-2012099925

PATIENT
  Sex: Female
  Weight: 68.027 kg

DRUGS (1)
  1. IBUPROFEN (ADVIL) [Suspect]
     Indication: OROPHARYNGEAL PAIN
     Dosage: 200 MG, 2X/DAY
     Route: 048
     Dates: start: 20120420, end: 20120422

REACTIONS (1)
  - DRUG INEFFECTIVE [None]
